FAERS Safety Report 7229863-1 (Version None)
Quarter: 2011Q1

REPORT INFORMATION
  Report Type: 
  Country: None (occurrence: None)
  Receive Date: 20110117
  Receipt Date: 20110111
  Transmission Date: 20110831
  Serious: Yes (Hospitalization, Congenital Anomaly, Other)
  Sender: FDA-Public Use
  Company Number: BE-PFIZER INC-2010051546

PATIENT
  Sex: Female

DRUGS (4)
  1. INFLUENZA VACCINE [Concomitant]
     Indication: ANTIVIRAL PROPHYLAXIS
     Dosage: UNK
     Route: 064
     Dates: start: 20100101
  2. SERLAIN [Suspect]
     Dosage: 50 MG, 1X/DAY
     Route: 064
     Dates: start: 20100419
  3. CLAMOXYL [Concomitant]
     Dosage: UNK
     Route: 064
     Dates: start: 20100401
  4. LORAZEPAM [Suspect]
     Dosage: 1-2 MG/DAY
     Route: 064
     Dates: start: 20100503

REACTIONS (7)
  - TALIPES [None]
  - PREMATURE BABY [None]
  - HYPOTONIA [None]
  - DRUG EXPOSURE DURING PREGNANCY [None]
  - MUSCLE DISORDER [None]
  - NEUROPATHY PERIPHERAL [None]
  - APGAR SCORE LOW [None]
